FAERS Safety Report 9769766 (Version 1)
Quarter: 2013Q4

REPORT INFORMATION
  Report Type: Spontaneous
  Country: US (occurrence: US)
  Receive Date: 20131218
  Receipt Date: 20131218
  Transmission Date: 20140711
  Serious: No
  Sender: FDA-Public Use
  Company Number: US-VERTEX PHARMACEUTICALS INC-AE-2011-000602

PATIENT
  Sex: 0

DRUGS (7)
  1. INCIVEK [Suspect]
     Indication: HEPATITIS C
     Dates: start: 20110627
  2. PEGASYS [Concomitant]
     Indication: HEPATITIS C
     Route: 058
     Dates: start: 20110627
  3. RIBASHERE [Concomitant]
     Indication: HEPATITIS C
     Route: 048
     Dates: start: 20110627
  4. LANTUS [Concomitant]
     Indication: DIABETES MELLITUS
     Route: 058
     Dates: start: 2001
  5. HUMULIN [Concomitant]
     Indication: DIABETES MELLITUS
     Route: 058
     Dates: start: 2001
  6. XIFAXAN [Concomitant]
     Indication: AMMONIA
     Route: 048
  7. NEURONTIN [Concomitant]
     Indication: NEUROPATHY PERIPHERAL
     Route: 048

REACTIONS (1)
  - Anaemia [Not Recovered/Not Resolved]
